FAERS Safety Report 7228236-5 (Version None)
Quarter: 2011Q1

REPORT INFORMATION
  Report Type: 
  Country: None (occurrence: None)
  Receive Date: 20110114
  Receipt Date: 20110111
  Transmission Date: 20110831
  Serious: Yes (Other)
  Sender: FDA-Public Use
  Company Number: CHPA2011US00869

PATIENT
  Age: 43 Year
  Sex: Female
  Weight: 54.422 kg

DRUGS (2)
  1. ANTIDEPRESSANTS [Interacting]
     Indication: DEPRESSION
     Dosage: UNK, UNK
     Route: 065
  2. THERAFLU FLU AND SORE THROAT [Suspect]
     Indication: OROPHARYNGEAL PAIN
     Dosage: 1 DF, ONCE/SINGLE
     Route: 048
     Dates: start: 20101225, end: 20101225

REACTIONS (7)
  - DYSPNOEA [None]
  - ANXIETY [None]
  - CLAUSTROPHOBIA [None]
  - PANIC ATTACK [None]
  - FEELING HOT [None]
  - DRUG INTERACTION [None]
  - CRYING [None]
